FAERS Safety Report 21734721 (Version 1)
Quarter: 2022Q4

REPORT INFORMATION
  Report Type: Spontaneous
  Country: FR (occurrence: FR)
  Receive Date: 20221215
  Receipt Date: 20221215
  Transmission Date: 20230113
  Serious: Yes (Hospitalization, Other)
  Sender: FDA-Public Use
  Company Number: None

PATIENT
  Age: 70 Year
  Sex: Female

DRUGS (2)
  1. CARBOPLATIN [Suspect]
     Active Substance: CARBOPLATIN
     Indication: Serous cystadenocarcinoma ovary
     Dosage: 7TH ADMINISTRATION, DURATION : 1 DAY
     Dates: start: 20221110, end: 20221110
  2. TAXOL [Concomitant]
     Active Substance: PACLITAXEL
     Indication: Serous cystadenocarcinoma ovary
     Dosage: 7TH ADMINISTRATION

REACTIONS (1)
  - Type II hypersensitivity [Recovered/Resolved]

NARRATIVE: CASE EVENT DATE: 20221110
